FAERS Safety Report 8990204 (Version 1)
Quarter: 2012Q4

REPORT INFORMATION
  Report Type: 
  Country: GB (occurrence: GB)
  Receive Date: 20121228
  Receipt Date: 20121228
  Transmission Date: 20130627
  Serious: Yes (Hospitalization)
  Sender: FDA-Public Use
  Company Number: GB-WATSON-2012-22835

PATIENT
  Sex: Male

DRUGS (1)
  1. RISPERIDONE (UNKNOWN) [Suspect]
     Indication: SCHIZOPHRENIA
     Dosage: 50mg
     Route: 030

REACTIONS (6)
  - Urinary tract infection [Unknown]
  - Mental impairment [Unknown]
  - Calculus bladder [Unknown]
  - Renal impairment [Unknown]
  - Blood creatine decreased [Unknown]
  - Pain [Unknown]
